FAERS Safety Report 7894018-4 (Version None)
Quarter: 2011Q4

REPORT INFORMATION
  Report Type: 
  Country: None (occurrence: None)
  Receive Date: 20111104
  Receipt Date: 20111028
  Transmission Date: 20120403
  Serious: Yes (Death, Hospitalization)
  Sender: FDA-Public Use
  Company Number: US-ACTELION-A-US2010-37423

PATIENT

DRUGS (6)
  1. SINGULAIR [Concomitant]
  2. TRACLEER [Suspect]
     Indication: PULMONARY ARTERIAL HYPERTENSION
     Dosage: 125 MG, BID
     Route: 048
     Dates: start: 20070101
  3. TRACLEER [Suspect]
     Dosage: UNK
     Route: 048
     Dates: start: 20051104
  4. CALCIUM CHANNEL BLOCKERS [Concomitant]
  5. OXYGEN [Concomitant]
  6. COUMADIN [Concomitant]

REACTIONS (7)
  - HEART RATE INCREASED [None]
  - PULMONARY HYPERTENSION [None]
  - OBSTRUCTIVE AIRWAYS DISORDER [None]
  - CARDIAC DISORDER [None]
  - CARDIAC ABLATION [None]
  - SLEEP APNOEA SYNDROME [None]
  - VENTRICULAR TACHYCARDIA [None]
